FAERS Safety Report 10376031 (Version 1)
Quarter: 2014Q3

REPORT INFORMATION
  Report Type: Spontaneous
  Country: US (occurrence: US)
  Receive Date: 20140811
  Receipt Date: 20140811
  Transmission Date: 20150326
  Serious: Yes (Hospitalization)
  Sender: FDA-Public Use
  Company Number: US-GLAXOSMITHKLINE-A1083733A

PATIENT
  Age: 71 Year
  Sex: Female

DRUGS (12)
  1. PRAVASTATIN [Concomitant]
     Active Substance: PRAVASTATIN\PRAVASTATIN SODIUM
  2. OXYCODONE [Concomitant]
     Active Substance: OXYCODONE
  3. ADVAIR HFA [Suspect]
     Active Substance: FLUTICASONE PROPIONATE\SALMETEROL XINAFOATE
     Indication: CHRONIC OBSTRUCTIVE PULMONARY DISEASE
     Dosage: 1PUFF TWICE PER DAY
     Route: 055
     Dates: start: 2011
  4. ALPRAZOLAM. [Concomitant]
     Active Substance: ALPRAZOLAM
  5. OMEPRAZOLE. [Concomitant]
     Active Substance: OMEPRAZOLE
  6. PREDNISONE. [Concomitant]
     Active Substance: PREDNISONE
  7. SPIRIVA [Concomitant]
     Active Substance: TIOTROPIUM BROMIDE MONOHYDRATE
  8. TEMAZEPAM. [Concomitant]
     Active Substance: TEMAZEPAM
  9. POTASSIUM [Concomitant]
     Active Substance: POTASSIUM
  10. COREG [Concomitant]
     Active Substance: CARVEDILOL
  11. ASPIRIN. [Concomitant]
     Active Substance: ASPIRIN
  12. LYRICA [Concomitant]
     Active Substance: PREGABALIN

REACTIONS (7)
  - Stent placement [Unknown]
  - Coronary artery bypass [Unknown]
  - Myocardial infarction [Unknown]
  - Gallbladder operation [Unknown]
  - Aortic aneurysm [Unknown]
  - Treatment noncompliance [Unknown]
  - Arterial therapeutic procedure [Unknown]

NARRATIVE: CASE EVENT DATE: 2012
